FAERS Safety Report 15092702 (Version 1)
Quarter: 2018Q2

REPORT INFORMATION
  Report Type: Spontaneous
  Country: ES (occurrence: ES)
  Receive Date: 20180629
  Receipt Date: 20180629
  Transmission Date: 20180711
  Serious: Yes (Death, Hospitalization, Other)
  Sender: FDA-Public Use
  Company Number: ES-SAKK-2018SA163747AA

PATIENT
  Age: 54 Year
  Sex: Female

DRUGS (4)
  1. DEFLAZACORT [Suspect]
     Active Substance: DEFLAZACORT
     Indication: RHEUMATOID ARTHRITIS
     Dosage: 6 MG, UNKNOWN
     Route: 065
  2. OLUMIANT [Interacting]
     Active Substance: BARICITINIB
     Indication: RHEUMATOID ARTHRITIS
     Dosage: 4 MG, UNKNOWN
     Route: 065
  3. ARAVA [Suspect]
     Active Substance: LEFLUNOMIDE
     Indication: PRODUCT USED FOR UNKNOWN INDICATION
     Dosage: 20 MG, UNKNOWN
     Route: 065
  4. SALBUTAMOL [Concomitant]
     Active Substance: ALBUTEROL
     Indication: ASTHMA
     Dosage: 1 DF, UNKNOWN
     Route: 065

REACTIONS (6)
  - Respiratory tract infection [Fatal]
  - Rheumatoid arthritis [Fatal]
  - Drug interaction [Unknown]
  - Influenza [Fatal]
  - Pneumonia [Fatal]
  - Lung infiltration [Fatal]

NARRATIVE: CASE EVENT DATE: 20180304
